FAERS Safety Report 23781991 (Version 6)
Quarter: 2024Q2

REPORT INFORMATION
  Report Type: Spontaneous
  Country: US (occurrence: US)
  Receive Date: 20240425
  Receipt Date: 20240618
  Transmission Date: 20240715
  Serious: No
  Sender: FDA-Public Use
  Company Number: US-AMGEN-USASP2024080077

PATIENT
  Age: 56 Year
  Sex: Female
  Weight: 62.1 kg

DRUGS (15)
  1. NEULASTA [Suspect]
     Active Substance: PEGFILGRASTIM
     Indication: Breast cancer
     Dosage: UNK
     Route: 065
  2. NEULASTA [Suspect]
     Active Substance: PEGFILGRASTIM
     Dosage: UNK
     Route: 065
  3. TAXOTERE [Concomitant]
     Active Substance: DOCETAXEL
     Indication: Breast cancer
     Dosage: UNK
  4. TAXOTERE [Concomitant]
     Active Substance: DOCETAXEL
     Indication: Product used for unknown indication
  5. TAXOTERE [Concomitant]
     Active Substance: DOCETAXEL
  6. TAXOTERE [Concomitant]
     Active Substance: DOCETAXEL
  7. CARBOPLATIN [Concomitant]
     Active Substance: CARBOPLATIN
     Indication: Breast cancer
     Dosage: UNK
  8. CARBOPLATIN [Concomitant]
     Active Substance: CARBOPLATIN
     Indication: Product used for unknown indication
  9. CARBOPLATIN [Concomitant]
     Active Substance: CARBOPLATIN
  10. CARBOPLATIN [Concomitant]
     Active Substance: CARBOPLATIN
  11. HERCEPTIN [Concomitant]
     Active Substance: TRASTUZUMAB
     Indication: Breast cancer
     Dosage: UNK
  12. HERCEPTIN [Concomitant]
     Active Substance: TRASTUZUMAB
     Indication: Product used for unknown indication
  13. HERCEPTIN [Concomitant]
     Active Substance: TRASTUZUMAB
  14. HERCEPTIN [Concomitant]
     Active Substance: TRASTUZUMAB
  15. PERJETA [Concomitant]
     Active Substance: PERTUZUMAB
     Indication: Breast cancer
     Dosage: UNK

REACTIONS (2)
  - Device adhesion issue [Unknown]
  - Device issue [Unknown]

NARRATIVE: CASE EVENT DATE: 20240412
